FAERS Safety Report 21369467 (Version 1)
Quarter: 2022Q3

REPORT INFORMATION
  Report Type: Spontaneous
  Country: CN (occurrence: CN)
  Receive Date: 20220923
  Receipt Date: 20220923
  Transmission Date: 20221027
  Serious: Yes (Hospitalization, Other)
  Sender: FDA-Public Use
  Company Number: CH-ALVOGEN-2022-ALVOGEN-120901

PATIENT
  Age: 14 Year
  Sex: Male

DRUGS (2)
  1. VORICONAZOLE [Interacting]
     Active Substance: VORICONAZOLE
     Indication: Aplastic anaemia
  2. NIFEDIPINE [Interacting]
     Active Substance: NIFEDIPINE
     Indication: Aplastic anaemia

REACTIONS (2)
  - Rhabdomyolysis [Unknown]
  - Drug interaction [Unknown]
